FAERS Safety Report 14298145 (Version 1)
Quarter: 2017Q4

REPORT INFORMATION
  Report Type: Other
  Country: US (occurrence: GB)
  Receive Date: 20171218
  Receipt Date: 20171218
  Transmission Date: 20180321
  Serious: Yes (Other)
  Sender: FDA-Public Use
  Company Number: GB-BRECKENRIDGE PHARMACEUTICAL, INC.-2037324

PATIENT
  Age: 16 Year
  Sex: Male

DRUGS (12)
  1. FUROSEMIDE. [Concomitant]
     Active Substance: FUROSEMIDE
  2. TEMAZEPAM. [Concomitant]
     Active Substance: TEMAZEPAM
  3. VANCOMYCIN HYDROCHLORIDE. [Concomitant]
     Active Substance: VANCOMYCIN HYDROCHLORIDE
  4. MEROPENEM. [Concomitant]
     Active Substance: MEROPENEM
  5. RANITIDINE. [Suspect]
     Active Substance: RANITIDINE
  6. PARACETAMOL [Concomitant]
     Active Substance: ACETAMINOPHEN
  7. SPIRONOLACTONE. [Concomitant]
     Active Substance: SPIRONOLACTONE
  8. ENOXAPARIN SODIUM. [Concomitant]
     Active Substance: ENOXAPARIN SODIUM
  9. IBUPROFEN. [Concomitant]
     Active Substance: IBUPROFEN
  10. CEFTRIAXONE. [Concomitant]
     Active Substance: CEFTRIAXONE
  11. RIFAMPICIN [Concomitant]
     Active Substance: RIFAMPIN
  12. GENTAMICIN. [Concomitant]
     Active Substance: GENTAMICIN

REACTIONS (11)
  - Liver function test abnormal [Recovered/Resolved]
  - Petechiae [Recovered/Resolved]
  - Face oedema [Recovered/Resolved]
  - Lymphadenopathy [Recovered/Resolved]
  - Eosinophilia [Recovered/Resolved]
  - Rash maculo-papular [Recovered/Resolved]
  - Renal impairment [Recovered/Resolved]
  - Leukopenia [Recovered/Resolved]
  - Drug eruption [Recovered/Resolved]
  - Drug reaction with eosinophilia and systemic symptoms [Recovered/Resolved]
  - Purpura [Recovered/Resolved]
